FAERS Safety Report 21938826 (Version 1)
Quarter: 2023Q1

REPORT INFORMATION
  Report Type: Report from Study
  Country: US (occurrence: US)
  Receive Date: 20230201
  Receipt Date: 20230201
  Transmission Date: 20230418
  Serious: Yes (Other)
  Sender: FDA-Public Use
  Company Number: US-EXELIXIS-CABO-22051492

PATIENT
  Age: 73 Year
  Sex: Male
  Weight: 18.141 kg

DRUGS (12)
  1. CABOMETYX [Suspect]
     Active Substance: CABOZANTINIB S-MALATE
     Indication: Renal cell carcinoma
     Dosage: 60 MG, QD
     Route: 048
     Dates: start: 202201
  2. CABOMETYX [Suspect]
     Active Substance: CABOZANTINIB S-MALATE
     Dosage: 60 MG, QOD
     Route: 048
     Dates: start: 20220507
  3. CABOMETYX [Suspect]
     Active Substance: CABOZANTINIB S-MALATE
     Dosage: 40 MG, QD
     Route: 048
     Dates: start: 20220510
  4. ASPIRIN [Concomitant]
     Active Substance: ASPIRIN
  5. CRESTOR [Concomitant]
     Active Substance: ROSUVASTATIN CALCIUM
  6. RAMIPRIL [Concomitant]
     Active Substance: RAMIPRIL
  7. HYDROCHLOROTHIAZIDE [Concomitant]
     Active Substance: HYDROCHLOROTHIAZIDE
  8. GLIMEPIRIDE [Concomitant]
     Active Substance: GLIMEPIRIDE
  9. METFORMIN HYDROCHLORIDE [Concomitant]
     Active Substance: METFORMIN HYDROCHLORIDE
  10. MARINOL [Concomitant]
     Active Substance: DRONABINOL
  11. ONDANSETRON [Concomitant]
     Active Substance: ONDANSETRON
  12. VITAMIN B12 [Concomitant]
     Active Substance: CYANOCOBALAMIN

REACTIONS (18)
  - Weight decreased [Recovered/Resolved]
  - Heart rate increased [Recovering/Resolving]
  - Pruritus [Recovering/Resolving]
  - Blood pressure decreased [Recovered/Resolved]
  - Dry mouth [Not Recovered/Not Resolved]
  - Dyspepsia [Recovering/Resolving]
  - Decreased appetite [Recovering/Resolving]
  - Fatigue [Recovering/Resolving]
  - Diarrhoea [Unknown]
  - Dizziness [Recovered/Resolved]
  - Taste disorder [Not Recovered/Not Resolved]
  - Nausea [Recovered/Resolved]
  - Constipation [Unknown]
  - Vomiting [Recovered/Resolved]
  - Back disorder [Recovered/Resolved]
  - Musculoskeletal discomfort [Recovered/Resolved]
  - Drug ineffective [Unknown]
  - Inappropriate schedule of product administration [Unknown]

NARRATIVE: CASE EVENT DATE: 20220301
